FAERS Safety Report 7224922-1 (Version None)
Quarter: 2011Q1

REPORT INFORMATION
  Report Type: 
  Country: None (occurrence: None)
  Receive Date: 20110113
  Receipt Date: 20110105
  Transmission Date: 20110831
  Serious: Yes (Death, Hospitalization)
  Sender: FDA-Public Use
  Company Number: US-ROCHE-752292

PATIENT
  Sex: Female

DRUGS (7)
  1. SOMA [Suspect]
     Route: 048
     Dates: end: 20101127
  2. LEXAPRO [Suspect]
     Indication: DEPRESSION
     Route: 048
     Dates: start: 20100604, end: 20101127
  3. FENTANYL-100 [Suspect]
     Route: 062
     Dates: end: 20101127
  4. VALIUM [Suspect]
     Route: 065
     Dates: end: 20101127
  5. PERCOCET [Suspect]
     Route: 048
     Dates: end: 20101127
  6. FENTORA [Suspect]
     Route: 065
     Dates: end: 20101127
  7. ZIPSOR [Suspect]
     Route: 048
     Dates: end: 20101127

REACTIONS (3)
  - CEREBROVASCULAR ACCIDENT [None]
  - LOSS OF CONSCIOUSNESS [None]
  - CHEST PAIN [None]
